FAERS Safety Report 6537885-9 (Version None)
Quarter: 2010Q1

REPORT INFORMATION
  Report Type: 
  Country: None (occurrence: None)
  Receive Date: 20100114
  Receipt Date: 20100105
  Transmission Date: 20100710
  Serious: Yes (Other)
  Sender: FDA-Public Use
  Company Number: GXKR2009US13830

PATIENT
  Age: 35 Year
  Sex: Male

DRUGS (5)
  1. CAPECITABINE (NGX) [Suspect]
     Indication: RECTAL CANCER
     Dosage: UNK
     Route: 065
     Dates: start: 20080401
  2. FLUOROURACIL [Suspect]
     Indication: RECTAL CANCER STAGE III
     Dosage: UNK
     Dates: start: 20080101
  3. FLUOROURACIL [Suspect]
     Dosage: BOLUS
     Route: 065
  4. LEUCOVORIN CALCIUM [Concomitant]
     Indication: RECTAL CANCER STAGE III
     Dosage: UNK
     Route: 065
     Dates: start: 20080901
  5. OXALIPLATIN [Concomitant]
     Indication: RECTAL CANCER STAGE III
     Dosage: UNK
     Route: 065
     Dates: start: 20080901

REACTIONS (8)
  - ANGINA PECTORIS [None]
  - CARDIOTOXICITY [None]
  - DYSPNOEA [None]
  - HYPERHIDROSIS [None]
  - LEFT VENTRICULAR DYSFUNCTION [None]
  - NAUSEA [None]
  - PALPITATIONS [None]
  - SINUS TACHYCARDIA [None]
